FAERS Safety Report 6392012-6 (Version None)
Quarter: 2009Q4

REPORT INFORMATION
  Report Type: 
  Country: None (occurrence: None)
  Receive Date: 20091007
  Receipt Date: 20090929
  Transmission Date: 20100525
  Serious: Yes (Other)
  Sender: FDA-Public Use
  Company Number: IT-GENENTECH-290606

PATIENT

DRUGS (1)
  1. RITUXIMAB [Suspect]
     Indication: DRUG USE FOR UNKNOWN INDICATION
     Route: 065

REACTIONS (32)
  - ACUTE MYELOID LEUKAEMIA [None]
  - B-CELL LYMPHOMA [None]
  - BLOOD DISORDER [None]
  - BREAST CANCER [None]
  - CARDIAC DISORDER [None]
  - COLON CANCER [None]
  - EYE DISORDER [None]
  - GASTROINTESTINAL DISORDER [None]
  - HYPERSENSITIVITY [None]
  - IMMUNE SYSTEM DISORDER [None]
  - INFECTION [None]
  - INFUSION RELATED REACTION [None]
  - KAPOSI'S SARCOMA [None]
  - LABORATORY TEST ABNORMAL [None]
  - LUNG DISORDER [None]
  - LUNG NEOPLASM MALIGNANT [None]
  - LYMPHOMA [None]
  - MALIGNANT MELANOMA [None]
  - MENTAL DISORDER [None]
  - MUSCULOSKELETAL DISORDER [None]
  - NEOPLASM MALIGNANT [None]
  - NON-HODGKIN'S LYMPHOMA [None]
  - OVARIAN CANCER [None]
  - PANCREATIC CARCINOMA [None]
  - RENAL CANCER [None]
  - RESPIRATORY DISORDER [None]
  - SEPSIS [None]
  - SKIN DISORDER [None]
  - THYROID CANCER [None]
  - TONSIL CANCER [None]
  - URINARY TRACT INFECTION [None]
  - URINE ANALYSIS ABNORMAL [None]
